FAERS Safety Report 4950699-6 (Version None)
Quarter: 2006Q1

REPORT INFORMATION
  Report Type: 
  Country: None (occurrence: None)
  Receive Date: 20060321
  Receipt Date: 20060321
  Transmission Date: 20060701
  Serious: Yes (Hospitalization)
  Sender: FDA-Public Use
  Company Number: None

PATIENT
  Age: 49 Year
  Sex: Female
  Weight: 97.0698 kg

DRUGS (8)
  1. TOPIRAMATE [Suspect]
     Indication: WEIGHT CONTROL
     Dosage: 25 MG  TWICE DAILY  PO
     Route: 048
     Dates: start: 20060306, end: 20060309
  2. DIVALPROEX SODIUM [Concomitant]
  3. PAROXETINE HCL [Concomitant]
  4. OMEPRAZOLE [Concomitant]
  5. SIMVASTATIN [Concomitant]
  6. ALBUTEROL [Concomitant]
  7. LORATADINE [Concomitant]
  8. ATENOLOL [Concomitant]

REACTIONS (13)
  - DYSTONIA [None]
  - FEELING ABNORMAL [None]
  - FEELING HOT AND COLD [None]
  - FLUSHING [None]
  - HALLUCINATION, VISUAL [None]
  - OEDEMA [None]
  - PARAESTHESIA [None]
  - PRURITUS [None]
  - SELF-INJURIOUS IDEATION [None]
  - SUICIDAL IDEATION [None]
  - THINKING ABNORMAL [None]
  - TONGUE DISORDER [None]
  - TREMOR [None]
